FAERS Safety Report 25612006 (Version 1)
Quarter: 2025Q3

REPORT INFORMATION
  Report Type: Spontaneous
  Country: US (occurrence: US)
  Receive Date: 20250728
  Receipt Date: 20250728
  Transmission Date: 20251021
  Serious: Yes (Other)
  Sender: RECORDATI
  Company Number: US-RECORDATI RARE DISEASE INC.-2024006308

PATIENT
  Sex: Female

DRUGS (1)
  1. PANHEMATIN [Suspect]
     Active Substance: HEMIN
     Indication: Porphyria acute
     Route: 042

REACTIONS (5)
  - Phlebitis [Unknown]
  - Muscle twitching [Unknown]
  - Skin discolouration [Recovered/Resolved]
  - Swelling [Recovered/Resolved]
  - Vein rupture [Unknown]
